FAERS Safety Report 14666683 (Version 1)
Quarter: 2018Q1

REPORT INFORMATION
  Report Type: Spontaneous
  Country: FR (occurrence: FR)
  Receive Date: 20180322
  Receipt Date: 20180322
  Transmission Date: 20180509
  Serious: Yes (Other)
  Sender: FDA-Public Use
  Company Number: FR-MERCK KGAA-2044259

PATIENT
  Age: 32 Year
  Sex: Female

DRUGS (1)
  1. NOVOTHYROX [Suspect]
     Active Substance: LEVOTHYROXINE SODIUM
     Indication: PRODUCT USED FOR UNKNOWN INDICATION
     Dates: start: 201706, end: 2017

REACTIONS (11)
  - Fatigue [None]
  - Acne [Recovered/Resolved]
  - Flatulence [None]
  - Headache [Recovered/Resolved]
  - Neuralgia [None]
  - Somnolence [None]
  - Amnesia [None]
  - Disturbance in attention [None]
  - Loss of personal independence in daily activities [None]
  - Dyspepsia [Recovered/Resolved]
  - Alopecia areata [Recovered/Resolved]

NARRATIVE: CASE EVENT DATE: 2017
